FAERS Safety Report 4907426-8 (Version None)
Quarter: 2006Q1

REPORT INFORMATION
  Report Type: 
  Country: None (occurrence: None)
  Receive Date: 20060207
  Receipt Date: 20060127
  Transmission Date: 20060701
  Serious: Yes (Other)
  Sender: FDA-Public Use
  Company Number: 2006014383

PATIENT
  Age: 61 Year
  Sex: Male
  Weight: 79.3795 kg

DRUGS (3)
  1. LIPITOR [Suspect]
     Indication: BLOOD CHOLESTEROL
     Dosage: 20 MG (20 MG, 1 IN 1 D)
  2. LOVASTATIN [Suspect]
     Indication: ILL-DEFINED DISORDER
  3. ADALAT [Concomitant]

REACTIONS (3)
  - ARTHRALGIA [None]
  - CONDITION AGGRAVATED [None]
  - OSTEOARTHRITIS [None]
